FAERS Safety Report 13381927 (Version 1)
Quarter: 2017Q1

REPORT INFORMATION
  Report Type: Spontaneous
  Country: BR (occurrence: BR)
  Receive Date: 20170329
  Receipt Date: 20170329
  Transmission Date: 20170429
  Serious: Yes (Other)
  Sender: FDA-Public Use
  Company Number: PHHY2017BR042694

PATIENT
  Sex: Male
  Weight: 64 kg

DRUGS (2)
  1. FORASEQ [Suspect]
     Active Substance: BUDESONIDE\FORMOTEROL FUMARATE
     Indication: ASTHMA
     Dosage: 1 DF, Q12H
     Route: 055
  2. SYMBICORT [Suspect]
     Active Substance: BUDESONIDE\FORMOTEROL FUMARATE DIHYDRATE
     Indication: PRODUCT USED FOR UNKNOWN INDICATION
     Route: 065

REACTIONS (13)
  - Dyspnoea [Unknown]
  - Muscle spasms [Unknown]
  - Osteomyelitis [Unknown]
  - Fatigue [Unknown]
  - Malaise [Unknown]
  - Wheezing [Unknown]
  - Tremor [Unknown]
  - Epilepsy [Unknown]
  - Pulmonary pain [Unknown]
  - Heart rate increased [Unknown]
  - Increased bronchial secretion [Unknown]
  - Tachycardia [Unknown]
  - Cold sweat [Unknown]
